FAERS Safety Report 4588297-9 (Version None)
Quarter: 2005Q1

REPORT INFORMATION
  Report Type: 
  Country: None (occurrence: None)
  Receive Date: 20050222
  Receipt Date: 20050209
  Transmission Date: 20050727
  Serious: Yes (Other)
  Sender: FDA-Public Use
  Company Number: US-JNJFOC-20041003875

PATIENT
  Sex: Female
  Weight: 56.7 kg

DRUGS (18)
  1. REMICADE [Suspect]
     Route: 042
  2. REMICADE [Suspect]
     Indication: CROHN'S DISEASE
     Route: 042
  3. ASACOL [Concomitant]
     Indication: CROHN'S DISEASE
  4. PREDNISONE [Concomitant]
     Indication: NEUROPATHY
  5. ISORDIL [Concomitant]
  6. ISOPTIN [Concomitant]
  7. LOPRESSOR [Concomitant]
     Indication: HEART RATE
  8. TRENTAL [Concomitant]
  9. NITROGLYCERIN [Concomitant]
  10. PROTONIX [Concomitant]
  11. PREMARIN [Concomitant]
  12. ASPIRIN [Concomitant]
  13. ASPIRIN [Concomitant]
  14. ASPIRIN [Concomitant]
  15. TAMOXIFEN CITRATE [Concomitant]
  16. PAXIL [Concomitant]
  17. NEURONTIN [Concomitant]
     Indication: NEUROPATHY PERIPHERAL
  18. ACTONEL [Concomitant]

REACTIONS (15)
  - CERVICOBRACHIAL SYNDROME [None]
  - CONDUCTION DISORDER [None]
  - CUBITAL TUNNEL SYNDROME [None]
  - DIPLOPIA [None]
  - DIZZINESS [None]
  - HYPOAESTHESIA [None]
  - MEMORY IMPAIRMENT [None]
  - NECK PAIN [None]
  - NEUROPATHY PERIPHERAL [None]
  - PARAESTHESIA [None]
  - SINUSITIS [None]
  - TREMOR [None]
  - URINARY INCONTINENCE [None]
  - VERTIGO [None]
  - VITAMIN B12 INCREASED [None]
